FAERS Safety Report 7480774-6 (Version None)
Quarter: 2011Q2

REPORT INFORMATION
  Report Type: 
  Country: None (occurrence: None)
  Receive Date: 20110516
  Receipt Date: 20110404
  Transmission Date: 20111010
  Serious: Yes (Hospitalization, Other)
  Sender: FDA-Public Use
  Company Number: US-BAYER-201039891NA

PATIENT
  Age: 42 Year
  Sex: Female
  Weight: 61.224 kg

DRUGS (2)
  1. ASTHMA MEDICATION [Concomitant]
  2. YAZ [Suspect]
     Indication: UTERINE LEIOMYOMA
     Dosage: UNK
     Route: 048
     Dates: start: 20080101, end: 20090101

REACTIONS (1)
  - CEREBROVASCULAR ACCIDENT [None]
